FAERS Safety Report 4899488-1 (Version None)
Quarter: 2006Q1

REPORT INFORMATION
  Report Type: 
  Country: None (occurrence: None)
  Receive Date: 20060131
  Receipt Date: 20060116
  Transmission Date: 20060701
  Serious: Yes (Hospitalization)
  Sender: FDA-Public Use
  Company Number: S06-GER-00087-01

PATIENT
  Age: 77 Year
  Sex: Male
  Weight: 72 kg

DRUGS (6)
  1. CITALOPRAM HYDROBROMIDE [Suspect]
     Indication: DEPRESSION
     Dosage: 20 MG QD PO
     Route: 048
     Dates: start: 20040601
  2. CITALOPRAM HYDROBROMIDE [Suspect]
     Indication: DEPRESSION
  3. EUGLUCON (GLIBENCLAMIDE) [Concomitant]
  4. GLUCOBAY [Concomitant]
  5. RENACOR [Concomitant]
  6. ZOCOR [Concomitant]

REACTIONS (1)
  - PARKINSON'S DISEASE [None]
